FAERS Safety Report 7405069-8 (Version None)
Quarter: 2011Q2

REPORT INFORMATION
  Report Type: 
  Country: None (occurrence: None)
  Receive Date: 20110411
  Receipt Date: 20110401
  Transmission Date: 20111010
  Serious: Yes (Other)
  Sender: FDA-Public Use
  Company Number: US-ASTELLAS-2011US001395

PATIENT
  Age: 78 Year
  Sex: Male

DRUGS (6)
  1. CELLCEPT [Concomitant]
     Indication: PRODUCT USED FOR UNKNOWN INDICATION
     Dosage: 500 MG, BID
     Route: 065
  2. PROGRAF [Interacting]
     Dosage: 2 MG, BID
     Route: 065
     Dates: start: 20100101
  3. PROGRAF [Interacting]
     Dosage: 2 MG, BID
     Route: 065
     Dates: end: 20100908
  4. PROGRAF [Suspect]
     Indication: RENAL TRANSPLANT
     Dosage: UNK
     Route: 065
     Dates: start: 20090801
  5. PROGRAF [Interacting]
     Dosage: 3 MG, BID
     Route: 065
     Dates: start: 20100909, end: 20100101
  6. BOLDO [Interacting]
     Indication: PRODUCT USED FOR UNKNOWN INDICATION
     Dosage: 300 MG, BID
     Route: 065
     Dates: start: 20100101, end: 20100901

REACTIONS (2)
  - DRUG INTERACTION [None]
  - DRUG LEVEL BELOW THERAPEUTIC [None]
